FAERS Safety Report 9751172 (Version 1)
Quarter: 2013Q4

REPORT INFORMATION
  Report Type: Spontaneous
  Country: US (occurrence: US)
  Receive Date: 20131212
  Receipt Date: 20131212
  Transmission Date: 20140711
  Serious: No
  Sender: FDA-Public Use
  Company Number: US-BIOGENIDEC-2013BI095123

PATIENT
  Age: 43 Year
  Sex: Female
  Weight: 68 kg

DRUGS (3)
  1. TECFIDERA [Suspect]
     Indication: MULTIPLE SCLEROSIS
     Route: 048
     Dates: start: 20130821
  2. IBUPROFEN [Concomitant]
  3. VITAMIN B-12 [Concomitant]

REACTIONS (3)
  - Nasopharyngitis [Unknown]
  - Incorrect product storage [Unknown]
  - Malaise [Unknown]
